FAERS Safety Report 14016324 (Version 1)
Quarter: 2017Q3

REPORT INFORMATION
  Report Type: Spontaneous
  Country: US (occurrence: US)
  Receive Date: 20170927
  Receipt Date: 20170927
  Transmission Date: 20171128
  Serious: No
  Sender: FDA-Public Use
  Company Number: US-SA-2017SA027994

PATIENT
  Age: 68 Year
  Sex: Female
  Weight: 88 kg

DRUGS (22)
  1. CAMPATH [Suspect]
     Active Substance: ALEMTUZUMAB
     Indication: T-CELL LYMPHOMA
     Route: 041
     Dates: start: 20170209
  2. VITAMIN B12 [Concomitant]
     Active Substance: CYANOCOBALAMIN
     Route: 048
  3. DESONIDE. [Concomitant]
     Active Substance: DESONIDE
     Indication: PRURITUS
     Dosage: APPLY TOPICALLY 1 (TWO) TIMES DAILY AS NEEDED
     Route: 061
  4. XYLOCAINE [Concomitant]
     Active Substance: LIDOCAINE HYDROCHLORIDE
     Dosage: APPLY TO BLOOD DRAW SITE AS NEEDED
  5. SALICYLIC ACID. [Concomitant]
     Active Substance: SALICYLIC ACID
     Dosage: APPLY ONCE TO TWICE DAILY TO THICK SCALY AREAS ON PALMS AND SOLES ONLY AFTER CHEMOTHERAPY
  6. VIBRA [Concomitant]
     Route: 048
  7. LASIX [Concomitant]
     Active Substance: FUROSEMIDE
     Route: 048
  8. BACTROBAN [Concomitant]
     Active Substance: MUPIROCIN\MUPIROCIN CALCIUM
     Route: 061
  9. BEXAROTENE. [Concomitant]
     Active Substance: BEXAROTENE
     Dosage: 75 MG CAP, TAKE 4 PILLS (300 MG) IN THE AM AMD 4 PILLS (300 MG) IN THE PM
  10. ALDACTONE [Concomitant]
     Active Substance: SPIRONOLACTONE
     Route: 048
  11. TYLENOL [Concomitant]
     Active Substance: ACETAMINOPHEN
     Indication: PAIN
     Dates: start: 20170209
  12. TYLENOL [Concomitant]
     Active Substance: ACETAMINOPHEN
     Indication: PAIN
     Dosage: 500 MG TAB BY MOUTH EVERY 6 HOURS AS NEEDED
     Route: 048
  13. DESONIDE. [Concomitant]
     Active Substance: DESONIDE
     Indication: RASH
     Dosage: APPLY TOPICALLY 1 (TWO) TIMES DAILY AS NEEDED
     Route: 061
  14. CAMPATH [Suspect]
     Active Substance: ALEMTUZUMAB
     Indication: T-CELL LYMPHOMA
     Route: 058
     Dates: start: 20170216
  15. ASA [Concomitant]
     Active Substance: ASPIRIN
     Route: 048
  16. SARNA [Concomitant]
     Indication: PRURITUS
     Dosage: APPLY TOPICALLY AS NEEDED FOR ITCHING
     Route: 061
  17. ATARAX [Concomitant]
     Active Substance: HYDROXYZINE HYDROCHLORIDE
     Dosage: 25 MG TABLET, TAKE 1-2 TABLETS AS NEEDED AT NIGHT
  18. CAMPATH [Suspect]
     Active Substance: ALEMTUZUMAB
     Indication: T-CELL LYMPHOMA
     Route: 041
     Dates: start: 20161212
  19. LOTREL [Concomitant]
     Active Substance: AMLODIPINE BESYLATE\BENAZEPRIL HYDROCHLORIDE
     Dosage: 10-40 MG PER CAPUSULE, 1 CAPSULE BY MOUTH DAILY
     Route: 048
     Dates: start: 20150925
  20. BENADRYL [Concomitant]
     Active Substance: DIPHENHYDRAMINE HYDROCHLORIDE
     Route: 048
     Dates: start: 20170209
  21. VALTREX [Concomitant]
     Active Substance: VALACYCLOVIR HYDROCHLORIDE
     Route: 048
  22. BACTRIM DS [Concomitant]
     Active Substance: SULFAMETHOXAZOLE\TRIMETHOPRIM
     Route: 048

REACTIONS (10)
  - Haemoglobin decreased [Unknown]
  - Speech disorder [Unknown]
  - Skin exfoliation [Unknown]
  - Cough [Recovered/Resolved]
  - Platelet count decreased [Unknown]
  - Pruritus [Unknown]
  - Insomnia [Unknown]
  - Wheezing [Recovered/Resolved]
  - Chills [Recovered/Resolved]
  - Dyspnoea [Recovered/Resolved]

NARRATIVE: CASE EVENT DATE: 20170209
